FAERS Safety Report 23971741 (Version 4)
Quarter: 2025Q1

REPORT INFORMATION
  Report Type: Spontaneous
  Country: US (occurrence: US)
  Receive Date: 20240613
  Receipt Date: 20250211
  Transmission Date: 20250409
  Serious: Yes (Other)
  Sender: GLAXOSMITHKLINE
  Company Number: US-GLAXOSMITHKLINE-US2024070667

PATIENT

DRUGS (1)
  1. NUCALA [Suspect]
     Active Substance: MEPOLIZUMAB
     Indication: Asthma

REACTIONS (9)
  - Hepatic failure [Not Recovered/Not Resolved]
  - Mental fatigue [Unknown]
  - Illness [Unknown]
  - Cough [Unknown]
  - Dyspnoea [Not Recovered/Not Resolved]
  - Condition aggravated [Not Recovered/Not Resolved]
  - Multiple allergies [Not Recovered/Not Resolved]
  - Symptom recurrence [Unknown]
  - Therapeutic response shortened [Unknown]

NARRATIVE: CASE EVENT DATE: 20240621
